FAERS Safety Report 7367795-9 (Version None)
Quarter: 2011Q1

REPORT INFORMATION
  Report Type: 
  Country: None (occurrence: None)
  Receive Date: 20110322
  Receipt Date: 20110317
  Transmission Date: 20110831
  Serious: Yes (Other)
  Sender: FDA-Public Use
  Company Number: BR-ABBOTT-11P-020-0712882-00

PATIENT
  Sex: Female
  Weight: 85 kg

DRUGS (2)
  1. DEPAKENE [Suspect]
     Indication: PRODUCT USED FOR UNKNOWN INDICATION
     Route: 048
  2. LIDOCAINE [Interacting]
     Indication: APPLICATION SITE ANAESTHESIA
     Dosage: APPLICATION ON THE GUM AND ON THE CHEEK
     Route: 061
     Dates: start: 20110302

REACTIONS (7)
  - ERUCTATION [None]
  - SUFFOCATION FEELING [None]
  - HYPERTENSION [None]
  - DRUG INTERACTION [None]
  - SENSORY DISTURBANCE [None]
  - DENTAL CARIES [None]
  - DIZZINESS [None]
